FAERS Safety Report 18879998 (Version 1)
Quarter: 2021Q1

REPORT INFORMATION
  Report Type: Spontaneous
  Country: US (occurrence: US)
  Receive Date: 20210211
  Receipt Date: 20210211
  Transmission Date: 20210420
  Serious: Yes (Hospitalization)
  Sender: FDA-Public Use
  Company Number: US-CUMBERLAND-2021-US-000008

PATIENT
  Age: 54 Year
  Sex: Female

DRUGS (3)
  1. ETANERCEPT [Suspect]
     Active Substance: ETANERCEPT
  2. PREDNISONE. [Suspect]
     Active Substance: PREDNISONE
  3. REDITREX [Suspect]
     Active Substance: METHOTREXATE

REACTIONS (1)
  - Colitis ischaemic [Unknown]
